FAERS Safety Report 4963135-0 (Version None)
Quarter: 2006Q2

REPORT INFORMATION
  Report Type: 
  Country: None (occurrence: None)
  Receive Date: 20060405
  Receipt Date: 20060130
  Transmission Date: 20061013
  Serious: Yes (Life-Threatening)
  Sender: FDA-Public Use
  Company Number: JP-ROCHE-434886

PATIENT
  Age: 74 Year
  Sex: Male
  Weight: 58 kg

DRUGS (11)
  1. TAMIFLU [Suspect]
     Route: 048
     Dates: start: 20060123, end: 20060123
  2. TAMIFLU [Suspect]
     Route: 048
     Dates: start: 20060124, end: 20060125
  3. TAMIFLU [Suspect]
     Route: 048
     Dates: start: 20060126, end: 20060126
  4. CLARITHROMYCIN [Concomitant]
     Route: 048
     Dates: start: 20060123, end: 20060127
  5. GASTER D [Concomitant]
     Route: 048
     Dates: start: 19990416, end: 20060127
  6. MICARDIS [Concomitant]
     Route: 048
     Dates: start: 20060107, end: 20060127
  7. ASPIRIN [Concomitant]
     Route: 048
     Dates: start: 19990416, end: 20060127
  8. DIART [Concomitant]
     Route: 048
     Dates: start: 20000609, end: 20060122
  9. ACECOL [Concomitant]
     Route: 048
     Dates: start: 20040808, end: 20060127
  10. EURODIN [Concomitant]
     Dosage: FORM = ORAL FORMULATION NOT OTHERWISE SPECIFIED
     Route: 048
  11. SALOBEL [Concomitant]
     Route: 048
     Dates: start: 19930723, end: 20060127

REACTIONS (5)
  - EPISTAXIS [None]
  - HAEMORRHAGIC DIATHESIS [None]
  - LIVER DISORDER [None]
  - MOUTH HAEMORRHAGE [None]
  - PLATELET COUNT DECREASED [None]
